FAERS Safety Report 13071331 (Version 2)
Quarter: 2017Q1

REPORT INFORMATION
  Report Type: Spontaneous
  Country: US (occurrence: US)
  Receive Date: 20161229
  Receipt Date: 20170110
  Transmission Date: 20170428
  Serious: Yes (Death)
  Sender: FDA-Public Use
  Company Number: US-JNJFOC-20161224147

PATIENT

DRUGS (1)
  1. DOXORUBICIN HYDROCHLORIDE. [Suspect]
     Active Substance: DOXORUBICIN HYDROCHLORIDE
     Indication: NEUROENDOCRINE TUMOUR
     Route: 013

REACTIONS (5)
  - Drug prescribing error [Unknown]
  - Product use issue [Unknown]
  - Adverse drug reaction [Unknown]
  - Death [Fatal]
  - Off label use [Unknown]
